FAERS Safety Report 16119360 (Version 1)
Quarter: 2019Q1

REPORT INFORMATION
  Report Type: Spontaneous
  Country: TR (occurrence: TR)
  Receive Date: 20190326
  Receipt Date: 20190326
  Transmission Date: 20190418
  Serious: Yes (Other)
  Sender: FDA-Public Use
  Company Number: TR-PFIZER INC-2019121880

PATIENT
  Age: 55 Year
  Sex: Male

DRUGS (2)
  1. LEFLUNOMID [Concomitant]
     Active Substance: LEFLUNOMIDE
  2. XELJANZ [Suspect]
     Active Substance: TOFACITINIB CITRATE
     Dosage: UNK
     Dates: start: 2019, end: 2019

REACTIONS (3)
  - Leukopenia [Unknown]
  - Thrombocytopenia [Unknown]
  - Haemoptysis [Unknown]

NARRATIVE: CASE EVENT DATE: 2019
